FAERS Safety Report 8709257 (Version 2)
Quarter: 2012Q4

REPORT INFORMATION
  Report Type: 
  Country: US (occurrence: US)
  Receive Date: 20120806
  Receipt Date: 20120912
  Transmission Date: 20130627
  Serious: Yes (Death)
  Sender: FDA-Public Use
  Company Number: US-ACTELION-A-US2012-69377

PATIENT
  Age: 55 Year
  Sex: Female

DRUGS (21)
  1. VELETRI [Suspect]
     Indication: PULMONARY ARTERIAL HYPERTENSION
     Dosage: 8.5 ng/kg, per min
     Route: 042
     Dates: start: 20120320
  2. VELETRI [Suspect]
     Dosage: 8 ng/kg, per min
     Route: 042
     Dates: start: 20120329, end: 201207
  3. ADVAIR [Concomitant]
  4. ALBUTEROL [Concomitant]
  5. AMITRIPTYLINE [Concomitant]
  6. ASPIRIN [Concomitant]
  7. COMPAZINE [Concomitant]
  8. FERROUS SULFATE [Concomitant]
  9. FLECTOR [Concomitant]
  10. FUROSEMIDE [Concomitant]
  11. HEPARIN [Concomitant]
  12. INSULIN ASPART [Concomitant]
  13. KLOR-CON [Concomitant]
  14. LANTUS [Concomitant]
  15. LEVOTHYROXINE [Concomitant]
  16. MIRAPEX [Concomitant]
  17. NYSTATIN [Concomitant]
  18. TIOTROPIUM [Concomitant]
  19. TOPROL [Concomitant]
  20. ULTRAM [Concomitant]
  21. XOPENEX [Concomitant]

REACTIONS (1)
  - Death [Fatal]
